FAERS Safety Report 8769650 (Version 2)
Quarter: 2013Q4

REPORT INFORMATION
  Report Type: Spontaneous
  Country: US (occurrence: US)
  Receive Date: 20120905
  Receipt Date: 20131108
  Transmission Date: 20140711
  Serious: Yes (Hospitalization, Other)
  Sender: FDA-Public Use
  Company Number: US-009507513-2012SP023350

PATIENT
  Sex: Male

DRUGS (3)
  1. REBETOL [Suspect]
     Indication: CHRONIC HEPATITIS C
     Dosage: 1200 MG, QD
     Dates: start: 20111005
  2. PEGINTERFERON ALFA-2A [Suspect]
     Indication: CHRONIC HEPATITIS C
     Dosage: 180 MICROGRAM, QW
     Dates: start: 20111005
  3. VICTRELIS [Suspect]
     Dosage: UNK UNK, TID

REACTIONS (9)
  - Toxicologic test abnormal [Unknown]
  - Hyperhidrosis [Unknown]
  - Substance use [Unknown]
  - Thyroid function test abnormal [Unknown]
  - Hip arthroplasty [Unknown]
  - Chills [Unknown]
  - White blood cell count decreased [Unknown]
  - Diarrhoea [Unknown]
  - Insomnia [Unknown]
